FAERS Safety Report 25073130 (Version 2)
Quarter: 2025Q1

REPORT INFORMATION
  Report Type: Report from Study
  Country: US (occurrence: US)
  Receive Date: 20250313
  Receipt Date: 20250328
  Transmission Date: 20250409
  Serious: Yes (Other)
  Sender: ALEXION PHARMACEUTICALS
  Company Number: US-ASTRAZENECA-202503USA005214US

PATIENT

DRUGS (3)
  1. OLAPARIB [Suspect]
     Active Substance: OLAPARIB
     Indication: Fallopian tube cancer
     Dosage: TAKE 1 TABLET BY MOUTH 2 TIMES A DAY. TAKE WITH 150 MG TABLET FOR TOTAL DOSE OF 250 MG TWICE DAILY
  2. OLAPARIB [Suspect]
     Active Substance: OLAPARIB
     Dosage: TAKE 1 TABLET BY MOUTH 2 TIMES A DAY. TAKE WITH 150 MG TABLET FOR TOTAL DOSE OF 250 MG TWICE DAILY
  3. LYNPARZA [Suspect]
     Active Substance: OLAPARIB
     Indication: Ovarian cancer
     Dosage: 200 MILLIGRAM, BID

REACTIONS (6)
  - Neuropathy peripheral [Unknown]
  - Pain [Unknown]
  - Fatigue [Not Recovered/Not Resolved]
  - Asthenia [Not Recovered/Not Resolved]
  - Dyspnoea [Unknown]
  - Mobility decreased [Unknown]
